FAERS Safety Report 13572509 (Version 1)
Quarter: 2017Q2

REPORT INFORMATION
  Report Type: Spontaneous
  Country: US (occurrence: US)
  Receive Date: 20170523
  Receipt Date: 20170523
  Transmission Date: 20170830
  Serious: Yes (Disabling)
  Sender: FDA-Public Use
  Company Number: None

PATIENT
  Age: 63 Year
  Sex: Female
  Weight: 81 kg

DRUGS (10)
  1. CRESTOR [Suspect]
     Active Substance: ROSUVASTATIN CALCIUM
     Indication: BLOOD CHOLESTEROL INCREASED
     Dosage: ?          QUANTITY:1 TABLET(S);?
     Route: 048
     Dates: start: 20170418, end: 20170426
  2. LOSARTAN. [Concomitant]
     Active Substance: LOSARTAN
  3. COLLAGEN [Concomitant]
     Active Substance: COLLAGEN
  4. GUMMY VITAMINS [Concomitant]
  5. AMLODIPINE [Concomitant]
     Active Substance: AMLODIPINE BESYLATE
  6. LEVEMIR [Concomitant]
     Active Substance: INSULIN DETEMIR
  7. VICTOZA [Concomitant]
     Active Substance: LIRAGLUTIDE
  8. BABY ASPIRIN [Concomitant]
     Active Substance: ASPIRIN
  9. VITAMIN C [Concomitant]
     Active Substance: ASCORBIC ACID
  10. MURAD PURE SKIN CLARIFYING DIETARY SUPPLEMENT [Concomitant]

REACTIONS (5)
  - Arthralgia [None]
  - Gait disturbance [None]
  - Bursitis [None]
  - Sleep disorder [None]
  - Muscle spasms [None]

NARRATIVE: CASE EVENT DATE: 20170426
